FAERS Safety Report 7637513-5 (Version None)
Quarter: 2011Q3

REPORT INFORMATION
  Report Type: 
  Country: None (occurrence: None)
  Receive Date: 20110726
  Receipt Date: 20110721
  Transmission Date: 20111222
  Serious: Yes (Death, Other)
  Sender: FDA-Public Use
  Company Number: PHHY2010IT23047

PATIENT
  Sex: Female

DRUGS (2)
  1. FASLODEX [Concomitant]
     Route: 042
     Dates: start: 20070112, end: 20090130
  2. ZOMETA [Suspect]
     Indication: METASTASES TO BONE
     Dosage: 4 MG, UNK
     Route: 042
     Dates: start: 20060608, end: 20080320

REACTIONS (3)
  - NEOPLASM PROGRESSION [None]
  - OSTEONECROSIS OF JAW [None]
  - NEOPLASM MALIGNANT [None]
